FAERS Safety Report 12199886 (Version 1)
Quarter: 2016Q1

REPORT INFORMATION
  Report Type: Spontaneous
  Country: US (occurrence: US)
  Receive Date: 20160322
  Receipt Date: 20160322
  Transmission Date: 20160526
  Serious: Yes (Death, Other)
  Sender: FDA-Public Use
  Company Number: US-PFIZER INC-2016160807

PATIENT
  Age: 68 Year
  Sex: Male

DRUGS (1)
  1. PHENYTOIN SODIUM. [Suspect]
     Active Substance: PHENYTOIN SODIUM
     Indication: PARTIAL SEIZURES
     Dosage: 880 MG, UNK (FOR 25 MINUTES (35 MG/MIN)
     Route: 042

REACTIONS (3)
  - Cardio-respiratory arrest [Fatal]
  - Bradycardia [Not Recovered/Not Resolved]
  - Hypotension [Not Recovered/Not Resolved]
